FAERS Safety Report 9939936 (Version 1)
Quarter: 2014Q1

REPORT INFORMATION
  Report Type: Report from Study
  Country: US (occurrence: US)
  Receive Date: 20140303
  Receipt Date: 20140303
  Transmission Date: 20141002
  Serious: No
  Sender: FDA-Public Use
  Company Number: US-ABBVIE-13P-163-1038789-00

PATIENT
  Age: 48 Year
  Sex: Male

DRUGS (3)
  1. HUMIRA [Suspect]
     Indication: PSORIASIS
     Dates: start: 20130102, end: 20130102
  2. HUMIRA [Suspect]
     Dates: start: 20130109
  3. 2 UNKNOWN CHOLESTEROL PILLS [Concomitant]
     Indication: PRODUCT USED FOR UNKNOWN INDICATION

REACTIONS (1)
  - Psoriasis [Not Recovered/Not Resolved]
